FAERS Safety Report 18786618 (Version 1)
Quarter: 2021Q1

REPORT INFORMATION
  Report Type: Spontaneous
  Country: US (occurrence: US)
  Receive Date: 20210125
  Receipt Date: 20210125
  Transmission Date: 20210419
  Serious: No
  Sender: FDA-Public Use
  Company Number: None

PATIENT
  Age: 35 Year
  Sex: Female
  Weight: 58.5 kg

DRUGS (3)
  1. ZITHROMAX [Concomitant]
     Active Substance: AZITHROMYCIN DIHYDRATE
  2. IBUPROFEN. [Concomitant]
     Active Substance: IBUPROFEN
  3. EQUATE COOL AND HEAT PAIN RELIEVING LIQUID [Suspect]
     Active Substance: MENTHOL
     Indication: BACK PAIN
     Dosage: ?          OTHER STRENGTH:ROLL ON;QUANTITY:1 1;OTHER FREQUENCY:1;?
     Route: 061

REACTIONS (3)
  - Application site pain [None]
  - Application site erythema [None]
  - Loss of consciousness [None]

NARRATIVE: CASE EVENT DATE: 20210125
